FAERS Safety Report 4886869-5 (Version None)
Quarter: 2006Q1

REPORT INFORMATION
  Report Type: 
  Country: None (occurrence: None)
  Receive Date: 20060119
  Receipt Date: 20060110
  Transmission Date: 20060701
  Serious: Yes (Hospitalization)
  Sender: FDA-Public Use
  Company Number: 200511148BVD

PATIENT
  Age: 80 Year
  Sex: Male

DRUGS (2)
  1. AVELOX [Suspect]
     Indication: DEVICE RELATED INFECTION
     Dosage: 400 MG, TOTAL DAILY, ORAL
     Route: 048
     Dates: start: 20051128, end: 20051129
  2. AVELOX [Suspect]
     Indication: DEVICE RELATED INFECTION
     Dosage: 400 MG, TOTAL DAILY, INTRAVENOUS
     Route: 042
     Dates: start: 20051124, end: 20051127

REACTIONS (2)
  - NECROTISING COLITIS [None]
  - PROCTOCOLITIS [None]
